FAERS Safety Report 25243546 (Version 1)
Quarter: 2025Q2

REPORT INFORMATION
  Report Type: Report from Study
  Country: CA (occurrence: CA)
  Receive Date: 20250428
  Receipt Date: 20250428
  Transmission Date: 20250717
  Serious: Yes (Hospitalization)
  Sender: ABBVIE
  Company Number: CA-ABBVIE-6249153

PATIENT
  Sex: Female

DRUGS (1)
  1. RINVOQ [Suspect]
     Active Substance: UPADACITINIB
     Indication: Rheumatoid arthritis
     Dosage: FORM STRENGTH 15 MG 1 TABLET
     Route: 048

REACTIONS (5)
  - Pelvic fracture [Unknown]
  - Contusion [Unknown]
  - Arthralgia [Unknown]
  - Fall [Unknown]
  - Pelvic pain [Unknown]
